FAERS Safety Report 12656007 (Version 2)
Quarter: 2021Q3

REPORT INFORMATION
  Report Type: Spontaneous
  Country: US (occurrence: US)
  Receive Date: 20160816
  Receipt Date: 20210908
  Transmission Date: 20211014
  Serious: Yes (Life-Threatening, Hospitalization, Other)
  Sender: FDA-Public Use
  Company Number: US-ROCHE-1614872

PATIENT
  Age: 24 Year
  Sex: Male
  Weight: 56 kg

DRUGS (5)
  1. EPOGEN [Concomitant]
     Active Substance: ERYTHROPOIETIN
     Dosage: 6000?8000
     Dates: start: 20150815
  2. ENGERIX?B [Concomitant]
     Active Substance: HEPATITIS B VIRUS SUBTYPE ADW2 HBSAG SURFACE PROTEIN ANTIGEN
     Dates: start: 20150721, end: 20150721
  3. CALCITRIOL. [Concomitant]
     Active Substance: CALCITRIOL
     Dates: start: 20150730
  4. MIRCERA [Suspect]
     Active Substance: METHOXY POLYETHYLENE GLYCOL-EPOETIN BETA
     Indication: ANAEMIA
     Dosage: NDC: 0004?0402?09
     Route: 042
     Dates: start: 20150715, end: 20150715
  5. MIRCERA [Suspect]
     Active Substance: METHOXY POLYETHYLENE GLYCOL-EPOETIN BETA
     Indication: END STAGE RENAL DISEASE
     Route: 065
     Dates: start: 20150721

REACTIONS (4)
  - Syncope [Unknown]
  - Respiratory rate decreased [Unknown]
  - Pallor [Unknown]
  - Anaphylactic reaction [Recovered/Resolved]

NARRATIVE: CASE EVENT DATE: 20150715
